FAERS Safety Report 13586951 (Version 1)
Quarter: 2017Q2

REPORT INFORMATION
  Report Type: Spontaneous
  Country: US (occurrence: US)
  Receive Date: 20170526
  Receipt Date: 20170526
  Transmission Date: 20170830
  Serious: Yes (Other)
  Sender: FDA-Public Use
  Company Number: US-ROCHE-687789

PATIENT
  Age: 63 Year
  Sex: Female
  Weight: 105.7 kg

DRUGS (10)
  1. NAPROSYN [Suspect]
     Active Substance: NAPROXEN
     Indication: ARTHRITIS
     Dosage: FREQUENCY: DAILYX2
     Route: 048
  2. OXYCODONE [Concomitant]
     Active Substance: OXYCODONE
     Route: 065
  3. OSTEO BI-FLEX PRODUCT NOS [Concomitant]
     Route: 065
  4. OS-CAL +D [Concomitant]
     Dosage: DRUG: OS CAL WITH VITAMIN D
     Route: 065
  5. METFORMIN [Concomitant]
     Active Substance: METFORMIN HYDROCHLORIDE
     Route: 065
  6. LIPITOR [Concomitant]
     Active Substance: ATORVASTATIN CALCIUM
     Route: 065
  7. FUROSEMIDE. [Interacting]
     Active Substance: FUROSEMIDE
     Indication: POLYURIA
     Route: 065
  8. SYNTHROID [Concomitant]
     Active Substance: LEVOTHYROXINE SODIUM
     Route: 065
  9. XANAX [Concomitant]
     Active Substance: ALPRAZOLAM
     Route: 065
  10. FERROUS GLUCONATE [Concomitant]
     Active Substance: FERROUS GLUCONATE
     Route: 065

REACTIONS (2)
  - Dyspnoea [Unknown]
  - Drug interaction [Unknown]
